FAERS Safety Report 4527132-1 (Version None)
Quarter: 2004Q4

REPORT INFORMATION
  Report Type: 
  Country: None (occurrence: None)
  Receive Date: 20041202
  Receipt Date: 20040611
  Transmission Date: 20050328
  Serious: Yes (Hospitalization)
  Sender: FDA-Public Use
  Company Number: 20040600313

PATIENT
  Age: 35 Year
  Sex: Female

DRUGS (2)
  1. PROMETHAZINE [Suspect]
     Indication: VOMITING
     Dosage: 25 MG QID IV
     Route: 042
     Dates: start: 20040609, end: 20040609
  2. DEMEROL [Suspect]
     Indication: PAIN
     Dosage: 75 ,G Q3HR IV
     Route: 042
     Dates: start: 20040609, end: 20040609

REACTIONS (2)
  - INJECTION SITE ERYTHEMA [None]
  - INJECTION SITE SWELLING [None]
